FAERS Safety Report 8543388-2 (Version None)
Quarter: 2012Q3

REPORT INFORMATION
  Report Type: 
  Country: None (occurrence: None)
  Receive Date: 20120727
  Receipt Date: 20120716
  Transmission Date: 20120928
  Serious: Yes (Hospitalization)
  Sender: FDA-Public Use
  Company Number: US-BAYER-2012-072953

PATIENT
  Age: 30 Year
  Sex: Female
  Weight: 76.644 kg

DRUGS (3)
  1. DROSPIRENONE AND ETHINYL ESTRADIOL [Suspect]
  2. PROTONIX [Concomitant]
     Dosage: 40 MG, UNK
     Route: 048
     Dates: start: 20100107, end: 20110120
  3. ISOTRETINOIN [Concomitant]
     Dosage: 40 MG, UNK
     Route: 048
     Dates: start: 20100715, end: 20110111

REACTIONS (1)
  - PULMONARY EMBOLISM [None]
